FAERS Safety Report 6240244-X (Version None)
Quarter: 2009Q2

REPORT INFORMATION
  Report Type: 
  Country: None (occurrence: None)
  Receive Date: 20090623
  Receipt Date: 20080506
  Transmission Date: 20091009
  Serious: No
  Sender: FDA-Public Use
  Company Number: US-ASTRAZENECA-2008UW09288

PATIENT
  Age: 66 Year
  Sex: Male
  Weight: 99.8 kg

DRUGS (5)
  1. PULMICORT FLEXHALER [Suspect]
     Indication: ASTHMA
     Route: 055
     Dates: start: 20080427
  2. LIPITOR [Concomitant]
  3. METOPROLOL SUCCINATE [Concomitant]
  4. NIASPAN [Concomitant]
  5. PLAVIX [Concomitant]

REACTIONS (2)
  - ILL-DEFINED DISORDER [None]
  - PEAK EXPIRATORY FLOW RATE DECREASED [None]
